FAERS Safety Report 24761480 (Version 3)
Quarter: 2025Q2

REPORT INFORMATION
  Report Type: Report from Study
  Country: US (occurrence: US)
  Receive Date: 20241220
  Receipt Date: 20250408
  Transmission Date: 20250716
  Serious: Yes (Hospitalization)
  Sender: EISAI
  Company Number: US-Eisai-EC-2024-179168

PATIENT
  Age: 62 Year
  Sex: Female
  Weight: 127 kg

DRUGS (18)
  1. LENVIMA [Suspect]
     Active Substance: LENVATINIB
     Indication: Endometrial cancer
     Dates: start: 20241114, end: 202412
  2. LENVIMA [Suspect]
     Active Substance: LENVATINIB
     Dates: end: 2025
  3. ONDANSETRON [Suspect]
     Active Substance: ONDANSETRON
     Indication: Vomiting
  4. ELIQUIS [Concomitant]
     Active Substance: APIXABAN
  5. TRAMADOL [Concomitant]
     Active Substance: TRAMADOL
  6. OXYCODONE [Concomitant]
     Active Substance: OXYCODONE
  7. CIPROFLOXACIN [Concomitant]
     Active Substance: CIPROFLOXACIN
  8. LIDOCAINE\PRILOCAINE [Concomitant]
     Active Substance: LIDOCAINE\PRILOCAINE
  9. ACETAMINOPHEN [Concomitant]
     Active Substance: ACETAMINOPHEN
  10. MIRALAX [Concomitant]
     Active Substance: POLYETHYLENE GLYCOL 3350
  11. VITAMIN D [Concomitant]
     Active Substance: VITAMIN D NOS
  12. OMEPRAZOLE [Concomitant]
     Active Substance: OMEPRAZOLE
  13. COMBIVENT RESPIMAT ALLERGY RELIEF [Concomitant]
  14. PROCHLORPERAZINE [Concomitant]
     Active Substance: PROCHLORPERAZINE
  15. TYLENOL [Concomitant]
     Active Substance: ACETAMINOPHEN
  16. LORATADINE [Concomitant]
     Active Substance: LORATADINE
  17. VOLTAREN [Concomitant]
     Active Substance: DICLOFENAC SODIUM
  18. KEYTRUDA [Concomitant]
     Active Substance: PEMBROLIZUMAB
     Indication: Endometrial cancer

REACTIONS (10)
  - Urinary tract infection [Unknown]
  - Sepsis [Unknown]
  - Asthenia [Recovering/Resolving]
  - Nausea [Not Recovered/Not Resolved]
  - Hypertension [Not Recovered/Not Resolved]
  - Vomiting [Not Recovered/Not Resolved]
  - Urine odour abnormal [Not Recovered/Not Resolved]
  - Headache [Not Recovered/Not Resolved]
  - Heart rate increased [Not Recovered/Not Resolved]
  - Hypotension [Recovering/Resolving]

NARRATIVE: CASE EVENT DATE: 20241101
